FAERS Safety Report 5639954-4 (Version None)
Quarter: 2008Q1

REPORT INFORMATION
  Report Type: 
  Country: None (occurrence: None)
  Receive Date: 20080225
  Receipt Date: 20080225
  Transmission Date: 20080703
  Serious: Yes (Death)
  Sender: FDA-Public Use
  Company Number: None

PATIENT
  Age: 79 Year
  Sex: Male
  Weight: 65.7716 kg

DRUGS (1)
  1. FENTANYL-75 [Suspect]
     Indication: ARTHRALGIA
     Dates: start: 20071201, end: 20071203

REACTIONS (6)
  - CARDIAC DISORDER [None]
  - CONFUSIONAL STATE [None]
  - DRUG PRESCRIBING ERROR [None]
  - FEELING COLD [None]
  - RESPIRATORY ARREST [None]
  - SOMNOLENCE [None]
